FAERS Safety Report 8063959-X (Version None)
Quarter: 2011Q4

REPORT INFORMATION
  Report Type: 
  Country: None (occurrence: None)
  Receive Date: 20111221
  Receipt Date: 20110720
  Transmission Date: 20120403
  Serious: Yes (Other)
  Sender: FDA-Public Use
  Company Number: 2011S1000046

PATIENT
  Age: 38 Year
  Sex: Male
  Weight: 181.4388 kg

DRUGS (11)
  1. PREDNISONE [Concomitant]
  2. COLCHICINE [Concomitant]
  3. ULORIC [Concomitant]
  4. ALLOPURINOL [Concomitant]
  5. OMEPRAZOLE [Concomitant]
  6. TYLENOL (CAPLET) [Concomitant]
  7. COZAAR [Concomitant]
  8. TRILIPIX [Concomitant]
  9. KRYSTEXXA [Suspect]
     Indication: GOUT
     Dosage: 8 MG;X1; IV; X1; IV
     Dates: start: 20110608, end: 20110608
  10. KRYSTEXXA [Suspect]
     Indication: GOUT
     Dosage: 8 MG;X1; IV; X1; IV
     Dates: start: 20110720, end: 20110720
  11. SOLU-CORTEF [Concomitant]

REACTIONS (1)
  - INFUSION RELATED REACTION [None]
